FAERS Safety Report 14191902 (Version 7)
Quarter: 2018Q2

REPORT INFORMATION
  Report Type: Spontaneous
  Country: US (occurrence: US)
  Receive Date: 20171115
  Receipt Date: 20180425
  Transmission Date: 20180711
  Serious: No
  Sender: FDA-Public Use
  Company Number: US-ACTELION-A-US2017-162603

PATIENT
  Age: 58 Year
  Sex: Female
  Weight: 49.89 kg

DRUGS (6)
  1. ADCIRCA [Concomitant]
     Active Substance: TADALAFIL
  2. WARFARIN [Concomitant]
     Active Substance: WARFARIN
  3. VELETRI [Suspect]
     Active Substance: EPOPROSTENOL
     Dosage: 16 NG/KG, PER MIN
     Route: 042
  4. VELETRI [Suspect]
     Active Substance: EPOPROSTENOL
     Dosage: 14 NG/KG, PER MIN
     Route: 042
  5. LETAIRIS [Concomitant]
     Active Substance: AMBRISENTAN
  6. VELETRI [Suspect]
     Active Substance: EPOPROSTENOL
     Indication: PULMONARY ARTERIAL HYPERTENSION
     Dosage: 12 NG/KG, PER MIN
     Route: 042

REACTIONS (22)
  - Ear pain [Unknown]
  - Pain in extremity [Unknown]
  - Catheter site pain [Unknown]
  - Myalgia [Unknown]
  - Diarrhoea [Unknown]
  - Malaise [Unknown]
  - Lymph node pain [Unknown]
  - Arthritis [Unknown]
  - Nausea [Unknown]
  - Pyrexia [Unknown]
  - Insomnia [Unknown]
  - Headache [Unknown]
  - Device connection issue [Unknown]
  - Fatigue [Unknown]
  - Middle ear effusion [Unknown]
  - Musculoskeletal pain [Unknown]
  - Arthralgia [Unknown]
  - Pain [Unknown]
  - Dyspnoea [Unknown]
  - Chills [Unknown]
  - Eye swelling [Unknown]
  - Sinusitis [Unknown]

NARRATIVE: CASE EVENT DATE: 20171128
